FAERS Safety Report 11516825 (Version 1)
Quarter: 2015Q3

REPORT INFORMATION
  Report Type: Spontaneous
  Country: US (occurrence: US)
  Receive Date: 20150917
  Receipt Date: 20150917
  Transmission Date: 20151125
  Serious: No
  Sender: FDA-Public Use
  Company Number: US-BIOGENIDEC-2015BI126971

PATIENT
  Sex: Female

DRUGS (1)
  1. AVONEX [Suspect]
     Active Substance: INTERFERON BETA-1A
     Indication: MULTIPLE SCLEROSIS
     Route: 030
     Dates: start: 19961023, end: 19991025

REACTIONS (4)
  - Herpes zoster [Not Recovered/Not Resolved]
  - Viral infection [Recovered/Resolved]
  - Fungal infection [Not Recovered/Not Resolved]
  - Vomiting [Recovered/Resolved]
